FAERS Safety Report 9508397 (Version 1)
Quarter: 2013Q1

REPORT INFORMATION
  Report Type: Spontaneous
  Country: US (occurrence: None)
  Receive Date: 20130305
  Receipt Date: 20130305
  Transmission Date: 20140127
  Serious: Yes (Other)
  Sender: FDA-Public Use
  Company Number: 163-21880-12051652

PATIENT
  Age: 81 Year
  Sex: Male

DRUGS (1)
  1. REVLIMID (LENALIDOMIDE) (CAPSULES) [Suspect]
     Indication: PLASMA CELL MYELOMA
     Dosage: CAPSULE, 25 MG, /D1-21, PO
     Dates: start: 20110718, end: 201202

REACTIONS (4)
  - Deep vein thrombosis [None]
  - Pancytopenia [None]
  - Pneumonia [None]
  - Fatigue [None]
